FAERS Safety Report 18088400 (Version 1)
Quarter: 2020Q3

REPORT INFORMATION
  Report Type: Report from Study
  Country: DK (occurrence: DK)
  Receive Date: 20200729
  Receipt Date: 20200729
  Transmission Date: 20201103
  Serious: Yes (Hospitalization)
  Sender: FDA-Public Use
  Company Number: DK-ASTELLAS-2020US024851

PATIENT
  Age: 49 Year
  Sex: Female

DRUGS (6)
  1. ECULIZUMAB [Suspect]
     Active Substance: ECULIZUMAB
     Route: 065
     Dates: start: 20191118
  2. ZOLPIDEM TARTRATE. [Concomitant]
     Active Substance: ZOLPIDEM TARTRATE
     Indication: PRODUCT USED FOR UNKNOWN INDICATION
     Dosage: UNK UNK, UNKNOWN FREQ.
     Route: 065
  3. TACROLIMUS. [Suspect]
     Active Substance: TACROLIMUS
     Indication: IMMUNOSUPPRESSANT DRUG THERAPY
     Dosage: UNK UNK, UNKNOWN FREQ.
     Route: 065
  4. ECULIZUMAB [Suspect]
     Active Substance: ECULIZUMAB
     Indication: ATYPICAL HAEMOLYTIC URAEMIC SYNDROME
     Route: 065
     Dates: start: 20160109, end: 20160205
  5. ECULIZUMAB [Suspect]
     Active Substance: ECULIZUMAB
     Route: 065
     Dates: start: 20160219
  6. MAGNESIUM SULFATE. [Concomitant]
     Active Substance: MAGNESIUM SULFATE
     Indication: HYPOMAGNESAEMIA
     Dosage: UNK UNK, UNKNOWN FREQ.
     Route: 065

REACTIONS (13)
  - Nausea [Unknown]
  - Dysphagia [Unknown]
  - Malaise [Unknown]
  - Headache [Unknown]
  - Myalgia [Recovering/Resolving]
  - Hypomagnesaemia [Unknown]
  - Sensation of foreign body [Unknown]
  - Palpitations [Unknown]
  - Anxiety [Unknown]
  - Tremor [Recovered/Resolved]
  - Vomiting [Recovering/Resolving]
  - Blood pressure increased [Unknown]
  - Dizziness [Unknown]

NARRATIVE: CASE EVENT DATE: 20191119
